FAERS Safety Report 9787308 (Version 2)
Quarter: 2014Q1

REPORT INFORMATION
  Report Type: Spontaneous
  Country: US (occurrence: US)
  Receive Date: 20131230
  Receipt Date: 20140127
  Transmission Date: 20141002
  Serious: No
  Sender: FDA-Public Use
  Company Number: US-009507513-1312USA005375

PATIENT
  Age: 37 Year
  Sex: Female
  Weight: 57.14 kg

DRUGS (1)
  1. IMPLANON [Suspect]
     Indication: CONTRACEPTION
     Dosage: 1 ROD
     Route: 059
     Dates: start: 20120725

REACTIONS (5)
  - Haemorrhage [Unknown]
  - Abdominal pain upper [Unknown]
  - Device dislocation [Recovered/Resolved]
  - Medical device complication [Unknown]
  - Device deployment issue [Recovered/Resolved]
